FAERS Safety Report 16833466 (Version 1)
Quarter: 2019Q3

REPORT INFORMATION
  Report Type: Spontaneous
  Country: US (occurrence: US)
  Receive Date: 20190920
  Receipt Date: 20190920
  Transmission Date: 20191005
  Serious: No
  Sender: FDA-Public Use
  Company Number: US-BIOGEN-2019BI00784354

PATIENT
  Sex: Female

DRUGS (1)
  1. TYSABRI [Suspect]
     Active Substance: NATALIZUMAB
     Indication: MULTIPLE SCLEROSIS
     Route: 065
     Dates: start: 20110407, end: 20190614

REACTIONS (10)
  - Rash [Unknown]
  - Excessive skin [Unknown]
  - Tooth loss [Not Recovered/Not Resolved]
  - Pain [Unknown]
  - Pneumonia [Unknown]
  - Vomiting [Unknown]
  - Dyslexia [Unknown]
  - Feeling jittery [Unknown]
  - Amnesia [Unknown]
  - Weight decreased [Unknown]
